FAERS Safety Report 18104483 (Version 2)
Quarter: 2020Q3

REPORT INFORMATION
  Report Type: Spontaneous
  Country: US (occurrence: US)
  Receive Date: 20200803
  Receipt Date: 20200824
  Transmission Date: 20201103
  Serious: Yes (Hospitalization, Other)
  Sender: FDA-Public Use
  Company Number: US-COLLEGIUM PHARMACEUTICAL, INC.-2020CGM00129

PATIENT
  Sex: Male
  Weight: 70.3 kg

DRUGS (3)
  1. XTAMPZA ER [Suspect]
     Active Substance: OXYCODONE
     Indication: BACK PAIN
     Dosage: 1 DOSAGE UNITS, 1X/DAY WITH A MEAL
     Route: 048
     Dates: start: 2016
  2. XTAMPZA ER [Suspect]
     Active Substance: OXYCODONE
     Dosage: 1 CAPSULES, 2X/DAY (EVERY 12 HOURS)
     Route: 048
     Dates: end: 2018
  3. OXYCONTIN [Suspect]
     Active Substance: OXYCODONE HYDROCHLORIDE
     Dosage: UNK

REACTIONS (16)
  - Facial paralysis [Not Recovered/Not Resolved]
  - Drug dependence [Unknown]
  - Migraine [Recovering/Resolving]
  - Off label use [Recovered/Resolved]
  - Constipation [Not Recovered/Not Resolved]
  - Performance status decreased [Not Recovered/Not Resolved]
  - Amnesia [Not Recovered/Not Resolved]
  - Back pain [Not Recovered/Not Resolved]
  - Vision blurred [Not Recovered/Not Resolved]
  - Drug ineffective [Recovered/Resolved]
  - Dry mouth [Recovering/Resolving]
  - Schizophrenia [Unknown]
  - Visual impairment [Not Recovered/Not Resolved]
  - Depression [Unknown]
  - Taste disorder [Unknown]
  - Dizziness postural [Not Recovered/Not Resolved]

NARRATIVE: CASE EVENT DATE: 2016
